FAERS Safety Report 8883942 (Version 1)
Quarter: 2012Q4

REPORT INFORMATION
  Report Type: 
  Country: US (occurrence: US)
  Receive Date: 20121102
  Receipt Date: 20121102
  Transmission Date: 20130627
  Serious: No
  Sender: FDA-Public Use
  Company Number: US-ASTRAZENECA-2012SE24824

PATIENT
  Sex: Male

DRUGS (2)
  1. CRESTOR [Suspect]
     Route: 048
     Dates: start: 201106
  2. CRESTOR [Suspect]
     Route: 048

REACTIONS (7)
  - Blood creatine phosphokinase increased [Unknown]
  - Fatigue [Unknown]
  - Muscle spasms [Unknown]
  - Muscle atrophy [Unknown]
  - Myalgia [Unknown]
  - Asthenia [Unknown]
  - Off label use [Unknown]
